FAERS Safety Report 12523711 (Version 2)
Quarter: 2016Q3

REPORT INFORMATION
  Report Type: Report from Study
  Country: US (occurrence: US)
  Receive Date: 20160704
  Receipt Date: 20160826
  Transmission Date: 20161109
  Serious: No
  Sender: FDA-Public Use
  Company Number: US-ASTRAZENECA-2016SE69155

PATIENT

DRUGS (1)
  1. BYETTA [Suspect]
     Active Substance: EXENATIDE
     Route: 065

REACTIONS (6)
  - Weight decreased [Unknown]
  - Weight increased [Unknown]
  - Back pain [Unknown]
  - Blood glucose decreased [Unknown]
  - Dyspepsia [Unknown]
  - Dizziness [Unknown]
